FAERS Safety Report 9235762 (Version 2)
Quarter: 2013Q4

REPORT INFORMATION
  Report Type: Report from Study
  Country: CA (occurrence: CA)
  Receive Date: 20130417
  Receipt Date: 20131011
  Transmission Date: 20140711
  Serious: Yes (Life-Threatening, Hospitalization, Other)
  Sender: FDA-Public Use
  Company Number: PHHY2013CA015220

PATIENT
  Sex: Female

DRUGS (4)
  1. ACLASTA [Suspect]
     Indication: OSTEOPOROSIS
     Dosage: 5 MG
     Route: 042
     Dates: start: 20120412
  2. LIPITOR [Concomitant]
     Dosage: 20 MG, QD
  3. CALCIUM [Concomitant]
     Dosage: UNK
  4. VITAMIN D [Concomitant]
     Dosage: UNK

REACTIONS (4)
  - Malignant cranial nerve neoplasm [Unknown]
  - Nasal neoplasm [Unknown]
  - Epistaxis [Unknown]
  - Migraine [Unknown]
